FAERS Safety Report 21375646 (Version 1)
Quarter: 2022Q3

REPORT INFORMATION
  Report Type: Spontaneous
  Country: CA (occurrence: CA)
  Receive Date: 20220926
  Receipt Date: 20220926
  Transmission Date: 20221027
  Serious: Yes (Hospitalization)
  Sender: FDA-Public Use
  Company Number: CA-TEVA-2022-CA-2075474

PATIENT
  Age: 57 Year
  Sex: Female
  Weight: 143 kg

DRUGS (1)
  1. AMIODARONE [Suspect]
     Active Substance: AMIODARONE
     Indication: Cardiac disorder
     Dosage: 200 MILLIGRAM DAILY;
     Route: 048

REACTIONS (1)
  - Hypothyroidism [Recovered/Resolved with Sequelae]
